FAERS Safety Report 16697212 (Version 1)
Quarter: 2019Q4

REPORT INFORMATION
  Report Type: Spontaneous
  Country: US (occurrence: US)
  Receive Date: 20190812
  Receipt Date: 20190812
  Transmission Date: 20200122
  Serious: Yes (Other)
  Sender: FDA-Public Use
  Company Number: None

PATIENT
  Age: 31 Year
  Sex: Male
  Weight: 82.8 kg

DRUGS (2)
  1. BUPRENORPHINE AND NALOXONE SUBLINGUAL FILM [Suspect]
     Active Substance: BUPRENORPHINE HYDROCHLORIDE\NALOXONE HYDROCHLORIDE
     Indication: DRUG USE DISORDER
     Route: 060
     Dates: start: 20190809, end: 20190811
  2. BUPRENORPHINE- NALOXONE  8-2MG [Concomitant]
     Dates: start: 20190809, end: 20190811

REACTIONS (1)
  - Vomiting [None]

NARRATIVE: CASE EVENT DATE: 20190811
